FAERS Safety Report 6406276-3 (Version None)
Quarter: 2009Q4

REPORT INFORMATION
  Report Type: 
  Country: None (occurrence: None)
  Receive Date: 20091019
  Receipt Date: 20091006
  Transmission Date: 20100525
  Serious: Yes (Other)
  Sender: FDA-Public Use
  Company Number: PHHY2009JP30314

PATIENT
  Sex: Male

DRUGS (3)
  1. DIOVAN HCT [Suspect]
     Indication: HYPERTENSION
     Dosage: 1 DF (80/6.25 MG) DAILY
     Route: 048
     Dates: start: 20090403, end: 20090711
  2. CALBLOCK [Suspect]
     Dosage: 8 MG DAILY
     Route: 048
     Dates: end: 20090605
  3. CALBLOCK [Suspect]
     Dosage: 16 MG DAILY
     Route: 048
     Dates: start: 20090606

REACTIONS (5)
  - BLOOD CREATINE PHOSPHOKINASE INCREASED [None]
  - BLOOD POTASSIUM DECREASED [None]
  - BLOOD URIC ACID INCREASED [None]
  - DEHYDRATION [None]
  - PYREXIA [None]
